FAERS Safety Report 13784757 (Version 2)
Quarter: 2017Q4

REPORT INFORMATION
  Report Type: Spontaneous
  Country: US (occurrence: US)
  Receive Date: 20170724
  Receipt Date: 20171024
  Transmission Date: 20180320
  Serious: No
  Sender: FDA-Public Use
  Company Number: US-IMPAX LABORATORIES, INC-2017-IPXL-01741

PATIENT
  Age: 67 Year
  Sex: Male
  Weight: 59 kg

DRUGS (4)
  1. RYTARY [Suspect]
     Active Substance: CARBIDOPA\LEVODOPA
     Dosage: 48.75/195MG, THREE CAPSULES, SEVEN TIMES A DAY
     Route: 048
     Dates: start: 201706
  2. RYTARY [Suspect]
     Active Substance: CARBIDOPA\LEVODOPA
     Dosage: 48.75/195MG, FOUR CAPSULES, SEVEN TIMES A DAY
     Route: 048
     Dates: start: 201706, end: 20170630
  3. RYTARY [Suspect]
     Active Substance: CARBIDOPA\LEVODOPA
     Indication: PARKINSON^S DISEASE
     Dosage: 48.75/195MG, TWO CAPSULES, SEVEN TIMES A DAY
     Route: 048
     Dates: start: 201706
  4. CARBIDOPA-LEVODOPA ER [Suspect]
     Active Substance: CARBIDOPA\LEVODOPA
     Indication: PARKINSON^S DISEASE
     Dosage: UNK
     Route: 065

REACTIONS (10)
  - Abnormal faeces [Recovered/Resolved]
  - Amnesia [Recovered/Resolved]
  - Stupor [Recovered/Resolved]
  - Prescribed overdose [Unknown]
  - Dyskinesia [Recovered/Resolved]
  - Muscular weakness [Recovered/Resolved]
  - Hallucination [Recovered/Resolved]
  - Wrong technique in product usage process [Unknown]
  - Diarrhoea [Recovered/Resolved]
  - Anxiety [Recovered/Resolved]

NARRATIVE: CASE EVENT DATE: 2017
